FAERS Safety Report 17159160 (Version 3)
Quarter: 2020Q4

REPORT INFORMATION
  Report Type: Spontaneous
  Country: US (occurrence: US)
  Receive Date: 20191216
  Receipt Date: 20201120
  Transmission Date: 20210113
  Serious: No
  Sender: FDA-Public Use
  Company Number: US-PFIZER INC-2019538087

PATIENT
  Age: 62 Year
  Sex: Female
  Weight: 85.73 kg

DRUGS (1)
  1. EFFEXOR XR [Suspect]
     Active Substance: VENLAFAXINE HYDROCHLORIDE
     Indication: DEPRESSION
     Dosage: 150 MG, 1X/DAY
     Dates: start: 2001

REACTIONS (8)
  - Body height decreased [Unknown]
  - Seasonal allergy [Unknown]
  - Confusional state [Unknown]
  - Paranasal sinus hypersecretion [Recovering/Resolving]
  - Nodule [Unknown]
  - Joint range of motion decreased [Unknown]
  - Pain in extremity [Unknown]
  - Bronchitis [Unknown]

NARRATIVE: CASE EVENT DATE: 2019
